FAERS Safety Report 7234821-7 (Version None)
Quarter: 2011Q1

REPORT INFORMATION
  Report Type: 
  Country: None (occurrence: None)
  Receive Date: 20110114
  Receipt Date: 20110114
  Transmission Date: 20110831
  Serious: Yes (Other)
  Sender: FDA-Public Use
  Company Number: None

PATIENT
  Sex: Female
  Weight: 52.3 kg

DRUGS (2)
  1. LANSOPRAZOLE [Suspect]
     Indication: GASTROOESOPHAGEAL REFLUX DISEASE
     Dosage: 30MG DAILY PO
     Route: 048
     Dates: start: 20100501
  2. LANSOPRAZOLE [Suspect]
     Indication: GASTROOESOPHAGEAL REFLUX DISEASE
     Dosage: 30MG DAILY PO
     Route: 048
     Dates: start: 20101201

REACTIONS (7)
  - ASTHMA [None]
  - FATIGUE [None]
  - ABDOMINAL DISTENSION [None]
  - FLATULENCE [None]
  - DRY MOUTH [None]
  - NECK PAIN [None]
  - PRODUCT SUBSTITUTION ISSUE [None]
